FAERS Safety Report 23467116 (Version 1)
Quarter: 2024Q1

REPORT INFORMATION
  Report Type: Spontaneous
  Country: FR (occurrence: FR)
  Receive Date: 20240201
  Receipt Date: 20240201
  Transmission Date: 20240409
  Serious: Yes (Other)
  Sender: FDA-Public Use
  Company Number: None

PATIENT
  Age: 19 Year
  Sex: Female
  Weight: 65 kg

DRUGS (2)
  1. VENLAFAXINE [Interacting]
     Active Substance: VENLAFAXINE HYDROCHLORIDE
     Indication: Depression
     Dosage: 75 MILLIGRAM, 75MG 3 TIMES PER DAY
     Route: 048
     Dates: start: 20231015, end: 20231025
  2. MIRTAZAPINE [Interacting]
     Active Substance: MIRTAZAPINE
     Indication: Product used for unknown indication
     Dosage: 90 MILLIGRAM
     Route: 048
     Dates: start: 20231025, end: 20231025

REACTIONS (3)
  - Poisoning deliberate [Unknown]
  - Drug interaction [Unknown]
  - Trismus [Recovered/Resolved]

NARRATIVE: CASE EVENT DATE: 20231025
